FAERS Safety Report 9717204 (Version 1)
Quarter: 2013Q4

REPORT INFORMATION
  Report Type: Spontaneous
  Country: US (occurrence: None)
  Receive Date: 20131125
  Receipt Date: 20131125
  Transmission Date: 20140711
  Serious: Yes (Other)
  Sender: FDA-Public Use
  Company Number: 2013-US-003219

PATIENT
  Age: 58 Year
  Sex: Female
  Weight: 84.4 kg

DRUGS (12)
  1. XYREM (SODIUM OXYBATE) ORAL SOLUTION, 500MG/ML [Suspect]
     Indication: NARCOLEPSY
     Route: 048
     Dates: start: 200511, end: 2011
  2. MIRALAX (MACROGOL 3350) [Concomitant]
  3. SINGULAIR [Concomitant]
  4. VITAMIN D (ERGOCALCIFEROL) [Concomitant]
  5. AMLODIPINE (AMLODIPINE MALEATE) [Concomitant]
  6. BENAZEPRIL (BENAZEPRIL HYDROCHLORIDE) [Concomitant]
  7. FEXOFENADINE (FEXOFENADINE HYDROCHLORIDE) [Concomitant]
  8. HYDROXYZINE (HYDROXYZINE HYDROCHLORIDE) [Concomitant]
  9. LANSOPRAZOLE (LANSOPRAZOLE) [Concomitant]
  10. MELOXICAM (MELOXICAM) [Concomitant]
  11. MODAFINIL (MODAFINIL) [Concomitant]
  12. URODIOL (URSODEOXYCHOLIC ACID) [Concomitant]

REACTIONS (6)
  - Sleep apnoea syndrome [None]
  - Hypoacusis [None]
  - Poor quality sleep [None]
  - Macroglossia [None]
  - Dry mouth [None]
  - Pain [None]
